FAERS Safety Report 18393387 (Version 1)
Quarter: 2020Q4

REPORT INFORMATION
  Report Type: Spontaneous
  Country: GB (occurrence: GB)
  Receive Date: 20201016
  Receipt Date: 20201016
  Transmission Date: 20210114
  Serious: Yes (Congenital Anomaly)
  Sender: FDA-Public Use
  Company Number: GB-JNJFOC-20201019281

PATIENT
  Sex: Female
  Weight: 3 kg

DRUGS (1)
  1. OVEX [Suspect]
     Active Substance: MEBENDAZOLE
     Indication: ENTEROBIASIS
     Dosage: ; IN TOTAL
     Route: 064
     Dates: start: 20200210, end: 20200210

REACTIONS (3)
  - Congenital hand malformation [Not Recovered/Not Resolved]
  - Congenital nail disorder [Not Recovered/Not Resolved]
  - Foetal exposure during pregnancy [Unknown]

NARRATIVE: CASE EVENT DATE: 20200210
